FAERS Safety Report 6782584-1 (Version None)
Quarter: 2010Q2

REPORT INFORMATION
  Report Type: 
  Country: None (occurrence: None)
  Receive Date: 20100621
  Receipt Date: 20100617
  Transmission Date: 20101027
  Serious: Yes (Other)
  Sender: FDA-Public Use
  Company Number: US-RB-020421-09

PATIENT
  Sex: Male

DRUGS (7)
  1. SUBOXONE [Suspect]
     Route: 060
     Dates: start: 20090701, end: 20090901
  2. SUBOXONE [Suspect]
     Dosage: TAPER DOWN TO 12 MG/DAILY
     Route: 060
     Dates: start: 20090901, end: 20100101
  3. SUBOXONE [Suspect]
     Route: 060
     Dates: start: 20100101, end: 20100513
  4. LAMOTRIGINE [Concomitant]
     Route: 065
  5. ZOLOFT [Concomitant]
     Indication: DEPRESSION
     Route: 065
  6. TRAZODONE HYDROCHLORIDE [Concomitant]
     Indication: INSOMNIA
     Route: 065
  7. LAMICTAL [Concomitant]
     Route: 065

REACTIONS (5)
  - CONVULSION [None]
  - EAR NEOPLASM [None]
  - INSOMNIA [None]
  - TINNITUS [None]
  - VISION BLURRED [None]
